FAERS Safety Report 10891855 (Version 1)
Quarter: 2015Q1

REPORT INFORMATION
  Report Type: Report from Study
  Country: US (occurrence: US)
  Receive Date: 20150306
  Receipt Date: 20150306
  Transmission Date: 20150721
  Serious: Yes (Other)
  Sender: FDA-Public Use
  Company Number: US-SA-2015SA026175

PATIENT
  Age: 51 Year
  Sex: Male

DRUGS (2)
  1. SOLOSTAR [Concomitant]
     Active Substance: DEVICE
     Dosage: START 3-4 YEARS AGO
  2. LANTUS SOLOSTAR [Suspect]
     Active Substance: INSULIN GLARGINE
     Indication: TYPE 2 DIABETES MELLITUS
     Dosage: STARTED 3-4 YEARS AGO DOSE:70 UNIT(S)
     Route: 065

REACTIONS (2)
  - Vascular graft [Unknown]
  - Cardiac operation [Unknown]
